FAERS Safety Report 7760165-0 (Version None)
Quarter: 2011Q3

REPORT INFORMATION
  Report Type: 
  Country: None (occurrence: None)
  Receive Date: 20110919
  Receipt Date: 20110721
  Transmission Date: 20111222
  Serious: Yes (Other)
  Sender: FDA-Public Use
  Company Number: FR-VERTEX PHARMACEUTICALS INC.-AE-2011-000997

PATIENT
  Sex: Male
  Weight: 82 kg

DRUGS (3)
  1. VX-950 [Suspect]
     Indication: HEPATITIS C
     Route: 048
     Dates: start: 20110526
  2. COPEGUS [Concomitant]
     Indication: HEPATITIS C
     Route: 048
     Dates: start: 20110428
  3. PEGASYS [Concomitant]
     Indication: HEPATITIS C
     Dates: start: 20110428

REACTIONS (2)
  - NEUTROPENIA [None]
  - ASTHENIA [None]
